FAERS Safety Report 6968440-4 (Version None)
Quarter: 2010Q3

REPORT INFORMATION
  Report Type: 
  Country: None (occurrence: None)
  Receive Date: 20100907
  Receipt Date: 20100825
  Transmission Date: 20110219
  Serious: Yes (Hospitalization, Other)
  Sender: FDA-Public Use
  Company Number: PHHY2010JP13839

PATIENT
  Sex: Male
  Weight: 46 kg

DRUGS (9)
  1. DIOVAN [Suspect]
     Indication: HYPERTENSION
     Dosage: 40 MG, QD
     Route: 048
     Dates: start: 20090912, end: 20091211
  2. DIOVAN [Suspect]
     Dosage: 80 MG, QD
     Route: 048
     Dates: start: 20091212
  3. VOLTAREN [Suspect]
     Indication: PAIN
     Dosage: 25 MG DAILY
     Dates: start: 20090903, end: 20091106
  4. NATRIX [Concomitant]
     Dosage: 1 MG, UNK
     Route: 048
     Dates: start: 20090918
  5. NORVASC [Concomitant]
     Dosage: 5 MG, UNK
     Route: 048
     Dates: start: 20091020
  6. NORVASC [Concomitant]
     Dosage: 10 MG, UNK
     Route: 048
     Dates: start: 20091020
  7. ZANTAC [Concomitant]
     Dosage: 150 MG, UNK
     Route: 048
     Dates: start: 20020425
  8. ZANTAC [Concomitant]
     Dosage: 300 MG, UNK
     Route: 048
     Dates: start: 20020425
  9. OMEPRAL [Concomitant]
     Dosage: 20 MG DAILY
     Route: 048
     Dates: start: 20100112, end: 20100211

REACTIONS (4)
  - BLOOD PRESSURE DIASTOLIC DECREASED [None]
  - BLOOD PRESSURE SYSTOLIC INCREASED [None]
  - GASTRIC ULCER HAEMORRHAGE [None]
  - GASTROINTESTINAL HAEMORRHAGE [None]
